FAERS Safety Report 8719726 (Version 3)
Quarter: 2013Q2

REPORT INFORMATION
  Report Type: Spontaneous
  Country: US (occurrence: US)
  Receive Date: 20120813
  Receipt Date: 20130517
  Transmission Date: 20140414
  Serious: Yes (Hospitalization)
  Sender: FDA-Public Use
  Company Number: US-BAYER-2012-078967

PATIENT
  Age: 27 Year
  Sex: Female
  Weight: 107.3 kg

DRUGS (16)
  1. YAZ [Suspect]
     Indication: CONTRACEPTION
     Dosage: UNK
     Dates: start: 200806, end: 201101
  2. YAZ [Suspect]
     Indication: PREMENSTRUAL DYSPHORIC DISORDER
  3. GIANVI [Suspect]
     Indication: CONTRACEPTION
     Dosage: UNK
     Dates: start: 200806, end: 201101
  4. GIANVI [Suspect]
     Indication: PREMENSTRUAL DYSPHORIC DISORDER
  5. FLONASE [Concomitant]
  6. OTHER ANALGESICS AND ANTIPYRETICS [Concomitant]
  7. ETODOLAC [Concomitant]
     Dosage: 400 MG, UNK
  8. BACLOFEN [Concomitant]
     Dosage: 10 MG, UNK
  9. AZITHROMYCIN [Concomitant]
     Dosage: 250 MG, UNK
  10. STATIN [Concomitant]
  11. EFFEXOR [Concomitant]
  12. FLUTICASONE PROPIONATE [Concomitant]
  13. VENLAFAXINE [Concomitant]
  14. CODEINE [Concomitant]
     Dosage: 400 MG, UNK
     Dates: start: 20110113
  15. AMOXICILLIN [Concomitant]
     Dosage: 100 MG, UNK
     Dates: start: 20110207
  16. CLARITIN [Concomitant]
     Dosage: UNK
     Dates: start: 20110207

REACTIONS (8)
  - Cerebrovascular accident [None]
  - Injury [None]
  - Pain [None]
  - General physical health deterioration [None]
  - Anxiety [None]
  - Emotional distress [None]
  - Pain [None]
  - Hemiparesis [None]
